FAERS Safety Report 10754856 (Version 1)
Quarter: 2015Q1

REPORT INFORMATION
  Report Type: Spontaneous
  Country: US (occurrence: US)
  Receive Date: 20150202
  Receipt Date: 20150202
  Transmission Date: 20150721
  Serious: Yes (Other)
  Sender: FDA-Public Use
  Company Number: US-GLAXOSMITHKLINE INC.-US2014GSK048329

PATIENT
  Age: 77 Year
  Sex: Female
  Weight: 49.43 kg

DRUGS (4)
  1. LAMICTAL XR [Suspect]
     Active Substance: LAMOTRIGINE
     Indication: MIGRAINE
     Dosage: UNK, VA
  2. PRILOSEC [Concomitant]
     Active Substance: OMEPRAZOLE MAGNESIUM
  3. LAMOTRIGINE. [Suspect]
     Active Substance: LAMOTRIGINE
     Dosage: 25 MG, BID
  4. LAMICTAL XR [Suspect]
     Active Substance: LAMOTRIGINE
     Indication: MIGRAINE WITH AURA

REACTIONS (8)
  - Renal impairment [Unknown]
  - Blood potassium increased [Recovered/Resolved]
  - Fluid retention [Unknown]
  - Renal disorder [Unknown]
  - Blood creatinine abnormal [Not Recovered/Not Resolved]
  - Blood urea abnormal [Not Recovered/Not Resolved]
  - Oedema peripheral [Not Recovered/Not Resolved]
  - Renal pain [Not Recovered/Not Resolved]
